FAERS Safety Report 16978041 (Version 3)
Quarter: 2020Q1

REPORT INFORMATION
  Report Type: Spontaneous
  Country: JP (occurrence: JP)
  Receive Date: 20191031
  Receipt Date: 20200124
  Transmission Date: 20200409
  Serious: Yes (Death, Hospitalization, Other)
  Sender: FDA-Public Use
  Company Number: JP-BRISTOL-MYERS SQUIBB COMPANY-BMS-2019-104047

PATIENT
  Age: 79 Year
  Sex: Female
  Weight: 68 kg

DRUGS (8)
  1. FOLIAMIN [Concomitant]
     Active Substance: FOLIC ACID
     Indication: PRE-EXISTING DISEASE
     Dosage: 5 MILLIGRAM, QD
     Route: 048
     Dates: start: 20190501
  2. LOXOPROFEN [LOXOPROFEN SODIUM] [Concomitant]
     Active Substance: LOXOPROFEN SODIUM
     Indication: PRE-EXISTING DISEASE
     Dosage: 60 MILLIGRAM, BID
     Route: 048
     Dates: start: 20180911
  3. RHEUMATREX [Suspect]
     Active Substance: METHOTREXATE SODIUM
     Indication: PRE-EXISTING DISEASE
     Dosage: 2 MILLIGRAM, BID
     Route: 048
     Dates: start: 20190501
  4. REBAMIPIDE [Concomitant]
     Active Substance: REBAMIPIDE
     Indication: PROPHYLAXIS
     Dosage: 100 MILLIGRAM, BID
     Route: 048
     Dates: start: 20180911
  5. ORENCIA [Suspect]
     Active Substance: ABATACEPT
     Indication: RHEUMATOID ARTHRITIS
     Dosage: 125 MILLIGRAM
     Route: 058
     Dates: start: 20190513
  6. SUVENYL [Concomitant]
     Active Substance: HYALURONATE SODIUM
     Indication: PRE-EXISTING DISEASE
     Dosage: 2.5 MILLIGRAM, QD
     Route: 042
     Dates: start: 20190821
  7. CYMBALTA [Concomitant]
     Active Substance: DULOXETINE HYDROCHLORIDE
     Indication: PRE-EXISTING DISEASE
     Dosage: 20 MILLIGRAM, BID
     Route: 048
     Dates: start: 20181201
  8. AZULFIDINE EN-TABS [Concomitant]
     Active Substance: SULFASALAZINE
     Indication: PRE-EXISTING DISEASE
     Dosage: 500 MILLIGRAM, BID
     Route: 048
     Dates: start: 20190415

REACTIONS (1)
  - Interstitial lung disease [Fatal]

NARRATIVE: CASE EVENT DATE: 20191018
